FAERS Safety Report 6675926-9 (Version None)
Quarter: 2010Q2

REPORT INFORMATION
  Report Type: 
  Country: None (occurrence: None)
  Receive Date: 20100412
  Receipt Date: 20100331
  Transmission Date: 20101027
  Serious: No
  Sender: FDA-Public Use
  Company Number: US-BIOGENIDEC-2010BI011261

PATIENT
  Sex: Male

DRUGS (3)
  1. TYSABRI [Suspect]
     Indication: MULTIPLE SCLEROSIS
     Route: 042
     Dates: start: 20070214
  2. AVONEX [Concomitant]
     Route: 030
     Dates: start: 20021016, end: 20031231
  3. AVONEX [Concomitant]
     Route: 030
     Dates: start: 20070214

REACTIONS (5)
  - HYPOAESTHESIA [None]
  - MOTOR DYSFUNCTION [None]
  - MULTIPLE SCLEROSIS RELAPSE [None]
  - STRESS [None]
  - VISION BLURRED [None]
